FAERS Safety Report 14120379 (Version 2)
Quarter: 2018Q1

REPORT INFORMATION
  Report Type: Spontaneous
  Country: BR (occurrence: BR)
  Receive Date: 20171024
  Receipt Date: 20180103
  Transmission Date: 20180508
  Serious: Yes (Other)
  Sender: FDA-Public Use
  Company Number: BR-PFIZER INC-2017455851

PATIENT
  Age: 65 Year
  Sex: Female

DRUGS (2)
  1. OMEPRAZOLE. [Concomitant]
     Active Substance: OMEPRAZOLE
     Dosage: UNK
  2. CELEBRA [Suspect]
     Active Substance: CELECOXIB
     Indication: PAIN
     Dosage: UNK, AS NEEDED
     Dates: start: 1993

REACTIONS (8)
  - Hepatic neoplasm [Unknown]
  - Neck pain [Unknown]
  - Fall [Unknown]
  - Influenza [Unknown]
  - Spinal fracture [Unknown]
  - Back pain [Unknown]
  - Pulpitis dental [Unknown]
  - Intentional product misuse [Unknown]

NARRATIVE: CASE EVENT DATE: 2000
